FAERS Safety Report 12200295 (Version 2)
Quarter: 2016Q2

REPORT INFORMATION
  Report Type: Report from Study
  Country: TR (occurrence: TR)
  Receive Date: 20160322
  Receipt Date: 20160513
  Transmission Date: 20160815
  Serious: No
  Sender: FDA-Public Use
  Company Number: TR-EMD SERONO-8073204

PATIENT
  Sex: Female
  Weight: 31 kg

DRUGS (1)
  1. SAIZEN [Suspect]
     Active Substance: SOMATROPIN
     Indication: GROWTH HORMONE DEFICIENCY
     Dates: start: 20120801

REACTIONS (2)
  - Bone cyst [Unknown]
  - Exostosis [Unknown]
